FAERS Safety Report 4666112-2 (Version None)
Quarter: 2005Q2

REPORT INFORMATION
  Report Type: 
  Country: None (occurrence: None)
  Receive Date: 20050519
  Receipt Date: 20050103
  Transmission Date: 20051028
  Serious: Yes (Disabling, Other)
  Sender: FDA-Public Use
  Company Number: PHBS2005CA00445

PATIENT
  Age: 60 Year
  Sex: Female

DRUGS (5)
  1. LETROZOLE [Concomitant]
     Dosage: 2.5 MG, QD
     Dates: start: 20040203, end: 20040301
  2. GB 03 [Concomitant]
     Dates: start: 20040101
  3. EXEMESTANE [Concomitant]
     Dosage: 25 MG, QD
     Dates: start: 20040301, end: 20040501
  4. CAPECITABINE [Concomitant]
     Dosage: 1500 MG BID FOR 14 DAYS EVERY 3 WK
     Dates: start: 20040602, end: 20041201
  5. AREDIA [Suspect]
     Indication: METASTASES TO BONE
     Dosage: 90 MG EVERY 4 WEEKS
     Dates: start: 20030201

REACTIONS (2)
  - OSTEONECROSIS [None]
  - TOOTH EXTRACTION [None]
